FAERS Safety Report 12266613 (Version 1)
Quarter: 2016Q2

REPORT INFORMATION
  Report Type: Spontaneous
  Country: NO (occurrence: NO)
  Receive Date: 20160414
  Receipt Date: 20160414
  Transmission Date: 20160815
  Serious: Yes (Hospitalization)
  Sender: FDA-Public Use
  Company Number: NO-009507513-1604NOR004340

PATIENT
  Age: 40 Year
  Sex: Female

DRUGS (5)
  1. LEPONEX [Suspect]
     Active Substance: CLOZAPINE
     Dosage: 800 MG DAILY
     Dates: start: 2015, end: 2015
  2. PERPHENAZINE. [Suspect]
     Active Substance: PERPHENAZINE
     Indication: SCHIZOPHRENIA
     Dosage: 1 ML, QOW/108.2 MG EVERY 14 DAY
  3. SOBRIL [Concomitant]
     Active Substance: OXAZEPAM
     Dosage: MAXIMUM 15 MG X 4
     Dates: start: 2005
  4. IMOVANE [Concomitant]
     Active Substance: ZOPICLONE
     Dosage: 5 MG MAX. X 1
  5. LEPONEX [Suspect]
     Active Substance: CLOZAPINE
     Indication: SCHIZOPHRENIA
     Dosage: 200 MG, BID
     Dates: end: 20160222

REACTIONS (2)
  - Neuroleptic malignant syndrome [Recovering/Resolving]
  - Leukocytosis [Recovering/Resolving]

NARRATIVE: CASE EVENT DATE: 20160222
